FAERS Safety Report 5394389-7 (Version None)
Quarter: 2007Q3

REPORT INFORMATION
  Report Type: 
  Country: None (occurrence: None)
  Receive Date: 20070723
  Receipt Date: 20070713
  Transmission Date: 20080115
  Serious: Yes (Life-Threatening, Hospitalization, Other)
  Sender: FDA-Public Use
  Company Number: AT-SANOFI-SYNTHELABO-F01200700360

PATIENT
  Sex: Male

DRUGS (10)
  1. GRANISETRON  HCL [Concomitant]
  2. METOCLOPRAMIDE [Concomitant]
  3. PANTOPRAZOL [Concomitant]
  4. ALLOPURINOL [Concomitant]
  5. LISINOPRIL [Concomitant]
  6. NIFEDIPINE [Concomitant]
  7. ATENOLOL [Concomitant]
  8. CAPECITABINE [Suspect]
     Dosage: MG FOR 2 WEEKS, Q3W
     Route: 048
  9. BEVACIZUMAB [Suspect]
     Route: 042
     Dates: start: 20061024, end: 20061024
  10. OXALIPLATIN [Suspect]
     Indication: COLON CANCER
     Route: 042

REACTIONS (3)
  - DEEP VEIN THROMBOSIS [None]
  - PERFORMANCE STATUS DECREASED [None]
  - RESUSCITATION [None]
